FAERS Safety Report 5598006-2 (Version None)
Quarter: 2008Q1

REPORT INFORMATION
  Report Type: 
  Country: None (occurrence: None)
  Receive Date: 20080122
  Receipt Date: 20080116
  Transmission Date: 20080703
  Serious: Yes (Hospitalization)
  Sender: FDA-Public Use
  Company Number: US-JNJFOC-20080104680

PATIENT
  Sex: Female
  Weight: 54.89 kg

DRUGS (2)
  1. CONCERTA [Suspect]
     Route: 048
  2. CONCERTA [Suspect]
     Indication: ATTENTION DEFICIT/HYPERACTIVITY DISORDER
     Route: 048

REACTIONS (5)
  - CONFUSIONAL STATE [None]
  - EYE PAIN [None]
  - HEADACHE [None]
  - PALPITATIONS [None]
  - VOMITING [None]
